FAERS Safety Report 4382150-1 (Version None)
Quarter: 2004Q3

REPORT INFORMATION
  Report Type: 
  Country: None (occurrence: None)
  Receive Date: 20040617
  Receipt Date: 20040421
  Transmission Date: 20050211
  Serious: Yes (Hospitalization)
  Sender: FDA-Public Use
  Company Number: TAP2004Q00489

PATIENT
  Age: 75 Year
  Sex: Female
  Weight: 115.2136 kg

DRUGS (11)
  1. NAPRAPAC 500 (COPACKAGED) [Suspect]
     Indication: OSTEOARTHRITIS
     Dosage: 1 CARD, 1 IN 1 WK, PER ORAL
     Route: 048
     Dates: start: 20040330
  2. PLAVIX [Suspect]
     Indication: ATRIAL FIBRILLATION
     Dosage: 75 MG, 1 IN 1 D, PER ORAL
     Route: 048
     Dates: start: 20040301, end: 20040406
  3. ADVAIR DISKUS [Concomitant]
  4. ALBUTEROL [Concomitant]
  5. ATROVENT [Concomitant]
  6. LASIX [Concomitant]
  7. IMDUR [Concomitant]
  8. LISINOPRIL [Concomitant]
  9. METOPROLOL [Concomitant]
  10. AMARYL [Concomitant]
  11. COLACE (DOCUSATE SODIUM) [Concomitant]

REACTIONS (6)
  - CARDIAC FAILURE CONGESTIVE [None]
  - CONDITION AGGRAVATED [None]
  - DIVERTICULUM [None]
  - LOWER GASTROINTESTINAL HAEMORRHAGE [None]
  - MELAENA [None]
  - RECTAL HAEMORRHAGE [None]
